FAERS Safety Report 23458854 (Version 4)
Quarter: 2024Q3

REPORT INFORMATION
  Report Type: Spontaneous
  Country: US (occurrence: US)
  Receive Date: 20240131
  Receipt Date: 20240927
  Transmission Date: 20241017
  Serious: Yes (Other)
  Sender: AMGEN
  Company Number: US-AMGEN-USASP2024015014

PATIENT
  Age: 85 Year
  Sex: Female

DRUGS (2)
  1. REPATHA [Suspect]
     Active Substance: EVOLOCUMAB
     Indication: Product used for unknown indication
     Dosage: UNK
     Route: 065
  2. ELIQUIS [Concomitant]
     Active Substance: APIXABAN
     Route: 065

REACTIONS (7)
  - Neuropathy peripheral [Unknown]
  - Kidney infection [Unknown]
  - Influenza like illness [Unknown]
  - Arthritis [Unknown]
  - Oropharyngeal pain [Unknown]
  - Haemoptysis [Unknown]
  - Dizziness [Unknown]

NARRATIVE: CASE EVENT DATE: 20231101
